FAERS Safety Report 24266467 (Version 8)
Quarter: 2025Q2

REPORT INFORMATION
  Report Type: Report from Study
  Country: CO (occurrence: CO)
  Receive Date: 20240830
  Receipt Date: 20250505
  Transmission Date: 20250717
  Serious: Yes (Hospitalization, Other)
  Sender: TAKEDA
  Company Number: CO-TAKEDA-2024TUS079690

PATIENT
  Age: 67 Year
  Sex: Female
  Weight: 47 kg

DRUGS (1)
  1. VEDOLIZUMAB [Suspect]
     Active Substance: VEDOLIZUMAB
     Indication: Colitis ulcerative

REACTIONS (15)
  - Colitis ulcerative [Unknown]
  - Syncope [Unknown]
  - Haematochezia [Unknown]
  - Abdominal pain [Recovering/Resolving]
  - Malaise [Unknown]
  - Abdominal discomfort [Recovered/Resolved]
  - Somnolence [Recovered/Resolved]
  - Poor quality sleep [Recovered/Resolved]
  - Dizziness [Recovered/Resolved]
  - Haemorrhage [Unknown]
  - Inappropriate schedule of product administration [Unknown]
  - Frequent bowel movements [Unknown]
  - Weight increased [Unknown]
  - Body height increased [Unknown]
  - Constipation [Recovering/Resolving]

NARRATIVE: CASE EVENT DATE: 20240805
